FAERS Safety Report 4982115-2 (Version None)
Quarter: 2006Q2

REPORT INFORMATION
  Report Type: 
  Country: None (occurrence: None)
  Receive Date: 20060425
  Receipt Date: 20060105
  Transmission Date: 20061013
  Serious: Yes (Hospitalization, Disabling)
  Sender: FDA-Public Use
  Company Number: US-MERCK-0601USA00603

PATIENT
  Age: 60 Year
  Sex: Male
  Weight: 123 kg

DRUGS (5)
  1. VIOXX [Suspect]
     Indication: ARTHRITIS
     Route: 048
     Dates: start: 20001018, end: 20031106
  2. VIOXX [Suspect]
     Indication: OSTEOARTHRITIS
     Route: 048
     Dates: start: 20001018, end: 20031106
  3. GUAIFENESIN [Concomitant]
     Route: 065
  4. ZITHROMAX [Concomitant]
     Route: 065
  5. IBUPROFEN [Concomitant]
     Route: 065

REACTIONS (10)
  - ARTHRITIS [None]
  - BLOOD CHOLESTEROL INCREASED [None]
  - BLOOD TRIGLYCERIDES INCREASED [None]
  - CARPAL TUNNEL SYNDROME [None]
  - DIABETES MELLITUS [None]
  - HYPERTENSION [None]
  - HYPOKALAEMIA [None]
  - MONARTHRITIS [None]
  - OEDEMA [None]
  - THROMBOSIS [None]
